FAERS Safety Report 10269645 (Version 1)
Quarter: 2014Q2

REPORT INFORMATION
  Report Type: Spontaneous
  Country: AU (occurrence: None)
  Receive Date: 20140606
  Receipt Date: 20140606
  Transmission Date: 20141212
  Serious: Yes (Other)
  Sender: FDA-Public Use
  Company Number: GAM-145-14-AU

PATIENT
  Age: 63 Year
  Sex: Male

DRUGS (3)
  1. OCTAGAM 5 (HUMAN NORMAL IMMUNOGLOBULIN (IV)) [Suspect]
     Indication: CHRONIC INFLAMMATORY DEMYELINATING POLYRADICULONEUROPATHY
     Route: 042
     Dates: start: 201312
  2. LIPID-LOWERING MEDICATION [Concomitant]
  3. ANTIHYPERTENSIVES [Concomitant]

REACTIONS (2)
  - Transmission of an infectious agent via product [None]
  - HIV test positive [None]
